FAERS Safety Report 19648218 (Version 2)
Quarter: 2021Q4

REPORT INFORMATION
  Report Type: Spontaneous
  Country: US (occurrence: US)
  Receive Date: 20210802
  Receipt Date: 20211216
  Transmission Date: 20220303
  Serious: No
  Sender: FDA-Public Use
  Company Number: US-SA-SAC20210728001326

PATIENT
  Age: 58 Year
  Sex: Female

DRUGS (2)
  1. FABRAZYME [Suspect]
     Active Substance: AGALSIDASE BETA
     Indication: Fabry^s disease
     Dosage: 10 MG, QOW
     Route: 042
     Dates: start: 2020
  2. FABRAZYME [Suspect]
     Active Substance: AGALSIDASE BETA
     Dosage: (70 MG AND 10 MG; STRENGTH: 35 MG AND 5 MG), Q10D
     Route: 042
     Dates: start: 202107

REACTIONS (7)
  - COVID-19 [Unknown]
  - Fatigue [Unknown]
  - Pain [Unknown]
  - Condition aggravated [Unknown]
  - Hypoaesthesia [Unknown]
  - Pain in extremity [Unknown]
  - Product use issue [Unknown]

NARRATIVE: CASE EVENT DATE: 20210701
